FAERS Safety Report 11526690 (Version 1)
Quarter: 2015Q3

REPORT INFORMATION
  Report Type: Spontaneous
  Country: US (occurrence: US)
  Receive Date: 20150903
  Receipt Date: 20150903
  Transmission Date: 20151125
  Serious: No
  Sender: FDA-Public Use
  Company Number: US-ELI_LILLY_AND_COMPANY-US201403002349

PATIENT
  Age: 60 Year
  Sex: Female

DRUGS (3)
  1. CYMBALTA [Suspect]
     Active Substance: DULOXETINE HYDROCHLORIDE
     Dosage: 4 MG, UNKNOWN
     Route: 065
  2. LEVODOPA [Concomitant]
     Active Substance: LEVODOPA
  3. CYMBALTA [Suspect]
     Active Substance: DULOXETINE HYDROCHLORIDE
     Indication: DEPRESSION
     Dosage: 2 MG, UNKNOWN
     Route: 065
     Dates: start: 201402

REACTIONS (2)
  - Headache [Unknown]
  - Underdose [Unknown]
